FAERS Safety Report 8805009 (Version 11)
Quarter: 2014Q1

REPORT INFORMATION
  Report Type: Report from Study
  Country: FR (occurrence: FR)
  Receive Date: 20120924
  Receipt Date: 20140312
  Transmission Date: 20141002
  Serious: Yes (Hospitalization, Disabling)
  Sender: FDA-Public Use
  Company Number: FR-ROCHE-1131038

PATIENT
  Age: 67 Year
  Sex: Male
  Weight: 48 kg

DRUGS (2)
  1. VISMODEGIB [Suspect]
     Indication: BASAL CELL CARCINOMA
     Dosage: LAST DOSE PRIOR TO EVENT: 30/AUG/2012, DRUG WITHDRAWN
     Route: 048
     Dates: start: 20120524, end: 20120830
  2. EFFERALGAN [Concomitant]
     Indication: PAIN
     Route: 065
     Dates: start: 200701

REACTIONS (1)
  - General physical health deterioration [Recovered/Resolved with Sequelae]
